FAERS Safety Report 16624833 (Version 1)
Quarter: 2019Q3

REPORT INFORMATION
  Report Type: Report from Study
  Country: FR (occurrence: FR)
  Receive Date: 20190724
  Receipt Date: 20190724
  Transmission Date: 20191004
  Serious: Yes (Other)
  Sender: FDA-Public Use
  Company Number: FR-PFIZER INC-2019315612

PATIENT

DRUGS (1)
  1. METHOTREXATE SODIUM. [Suspect]
     Active Substance: METHOTREXATE SODIUM
     Indication: INFLAMMATION
     Dosage: UNK
     Route: 064

REACTIONS (3)
  - Congenital chylothorax [Unknown]
  - Maternal exposure during pregnancy [Unknown]
  - Congenital musculoskeletal anomaly [Unknown]
